FAERS Safety Report 17515330 (Version 1)
Quarter: 2020Q1

REPORT INFORMATION
  Report Type: Spontaneous
  Country: US (occurrence: US)
  Receive Date: 20200309
  Receipt Date: 20200309
  Transmission Date: 20200409
  Serious: Yes (Other)
  Sender: FDA-Public Use
  Company Number: US-BRISTOL-MYERS SQUIBB COMPANY-BMS-2020-017463

PATIENT
  Sex: Male
  Weight: 86.18 kg

DRUGS (2)
  1. PRAVACOL [Suspect]
     Active Substance: PRAVASTATIN SODIUM
     Indication: BLOOD CHOLESTEROL INCREASED
     Dosage: ONCE DAILY AT BEDTIME
     Route: 048
     Dates: start: 2010
  2. PRAVASTATIN. [Suspect]
     Active Substance: PRAVASTATIN
     Indication: BLOOD CHOLESTEROL INCREASED
     Dosage: FOR 90 DAYS
     Route: 065
     Dates: start: 2010

REACTIONS (1)
  - Cataract [Unknown]
